FAERS Safety Report 16015094 (Version 1)
Quarter: 2019Q1

REPORT INFORMATION
  Report Type: Spontaneous
  Country: US (occurrence: US)
  Receive Date: 20190227
  Receipt Date: 20190227
  Transmission Date: 20190418
  Serious: No
  Sender: FDA-Public Use
  Company Number: US-SHIRE-US201906276

PATIENT
  Sex: Male

DRUGS (2)
  1. CUVITRU [Suspect]
     Active Substance: HUMAN IMMUNOGLOBULIN G
     Indication: IMMUNE SYSTEM DISORDER
     Dosage: UNK
     Route: 065
  2. CUVITRU [Suspect]
     Active Substance: HUMAN IMMUNOGLOBULIN G
     Indication: IMMUNODEFICIENCY

REACTIONS (10)
  - Inhibitory drug interaction [Unknown]
  - Peripheral swelling [Unknown]
  - Cough [Unknown]
  - Diplopia [Unknown]
  - Gait disturbance [Unknown]
  - Vision blurred [Unknown]
  - Malaise [Unknown]
  - Dilated pores [Unknown]
  - Lymphadenopathy [Unknown]
  - Injection site bruising [Unknown]
